FAERS Safety Report 5017410-4 (Version None)
Quarter: 2006Q2

REPORT INFORMATION
  Report Type: 
  Country: None (occurrence: None)
  Receive Date: 20060414
  Receipt Date: 20060224
  Transmission Date: 20061013
  Serious: No
  Sender: FDA-Public Use
  Company Number: 2006SP000937

PATIENT
  Age: 56 Year
  Sex: Female
  Weight: 61.6892 kg

DRUGS (3)
  1. LUNESTA [Suspect]
     Indication: INSOMNIA
     Dosage: 1 MG; HS; ORAL
     Route: 048
     Dates: start: 20060101
  2. TOPROL-XL [Concomitant]
  3. ESTROGENS CONJUGATED [Concomitant]

REACTIONS (4)
  - BODY TEMPERATURE FLUCTUATION [None]
  - DYSGEUSIA [None]
  - HOT FLUSH [None]
  - HYPERHIDROSIS [None]
